FAERS Safety Report 20124406 (Version 2)
Quarter: 2021Q4

REPORT INFORMATION
  Report Type: Spontaneous
  Country: JP (occurrence: JP)
  Receive Date: 20211129
  Receipt Date: 20211228
  Transmission Date: 20220303
  Serious: Yes (Death, Hospitalization, Other)
  Sender: FDA-Public Use
  Company Number: JP-MSD-M2021-24637

PATIENT
  Age: 77 Year
  Sex: Male

DRUGS (4)
  1. KEYTRUDA [Suspect]
     Active Substance: PEMBROLIZUMAB
     Indication: Renal cell carcinoma stage IV
     Dosage: 200 MILLIGRAM, Q3W
     Route: 041
     Dates: start: 20210927, end: 20210927
  2. KEYTRUDA [Suspect]
     Active Substance: PEMBROLIZUMAB
     Dosage: 400 MILLIGRAM
     Route: 041
     Dates: start: 20211025, end: 20211025
  3. AXITINIB [Concomitant]
     Active Substance: AXITINIB
     Indication: Renal cell carcinoma stage IV
     Dosage: 10 MILLIGRAM, FOR ONE DAY
     Route: 048
     Dates: start: 20210901, end: 20211025
  4. CORTRIL [Concomitant]
     Active Substance: HYDROCORTISONE
     Indication: Addison^s disease
     Dosage: 30 MILLIGRAM
     Route: 065

REACTIONS (3)
  - Pneumonia aspiration [Fatal]
  - Immune-mediated enterocolitis [Recovering/Resolving]
  - Cystitis noninfective [Recovering/Resolving]

NARRATIVE: CASE EVENT DATE: 20211001
